FAERS Safety Report 17969886 (Version 2)
Quarter: 2020Q4

REPORT INFORMATION
  Report Type: Spontaneous
  Country: JP (occurrence: JP)
  Receive Date: 20200701
  Receipt Date: 20201021
  Transmission Date: 20210113
  Serious: Yes (Other)
  Sender: FDA-Public Use
  Company Number: JP-ASTRAZENECA-2020SE80401

PATIENT
  Age: 49 Year
  Sex: Male
  Weight: 74.7 kg

DRUGS (3)
  1. INSULIN GLARGINE [Concomitant]
     Active Substance: INSULIN GLARGINE
     Dosage: 28 IU INTERNATINAL UNITS
     Route: 065
  2. VOGLIBOSE [Concomitant]
     Active Substance: VOGLIBOSE
     Dosage: DOSE UNKNOWN
     Route: 065
  3. FORXIGA [Suspect]
     Active Substance: DAPAGLIFLOZIN
     Indication: TYPE 1 DIABETES MELLITUS
     Dosage: DOSE UNKNOWN
     Route: 048

REACTIONS (2)
  - Hyperglycaemic hyperosmolar nonketotic syndrome [Unknown]
  - Diabetic ketoacidosis [Unknown]
